FAERS Safety Report 6741264-9 (Version None)
Quarter: 2010Q2

REPORT INFORMATION
  Report Type: 
  Country: None (occurrence: None)
  Receive Date: 20100526
  Receipt Date: 20100526
  Transmission Date: 20101027
  Serious: Yes (Other)
  Sender: FDA-Public Use
  Company Number: None

PATIENT
  Age: 9 Month
  Sex: Female
  Weight: 7.2576 kg

DRUGS (2)
  1. CONCENTRATED INFANT DROPS 80 MG PER 0.8 ML TYLENOL [Suspect]
     Indication: PYREXIA
     Dosage: .4 ML ONCE PO
     Route: 048
     Dates: start: 20091201, end: 20100424
  2. CONCENTRATED INFANT DROPS 80 MG PER 0.8 ML TYLENOL [Suspect]
     Indication: TEETHING
     Dosage: .4 ML ONCE PO
     Route: 048
     Dates: start: 20091201, end: 20100424

REACTIONS (2)
  - CONVULSION [None]
  - MIDDLE INSOMNIA [None]
